FAERS Safety Report 8103889-8 (Version None)
Quarter: 2012Q1

REPORT INFORMATION
  Report Type: 
  Country: None (occurrence: None)
  Receive Date: 20120201
  Receipt Date: 20120126
  Transmission Date: 20120608
  Serious: Yes (Other)
  Sender: FDA-Public Use
  Company Number: US-PFIZER INC-2012022142

PATIENT
  Sex: Female
  Weight: 70.3 kg

DRUGS (3)
  1. POTASSIUM [Concomitant]
     Indication: HYPERTENSION
     Dosage: UNK
  2. PREMPRO [Suspect]
     Indication: MENOPAUSAL DISORDER
     Dosage: UNK, 1X/DAY
     Route: 048
     Dates: start: 19860101, end: 20070101
  3. IBUPROFEN [Concomitant]
     Indication: SPINAL COLUMN STENOSIS
     Dosage: UNK

REACTIONS (5)
  - FUNCTIONAL GASTROINTESTINAL DISORDER [None]
  - PAIN [None]
  - DYSPEPSIA [None]
  - VULVOVAGINAL MYCOTIC INFECTION [None]
  - WEIGHT DECREASED [None]
